FAERS Safety Report 26120211 (Version 1)
Quarter: 2025Q4

REPORT INFORMATION
  Report Type: Spontaneous
  Country: GB (occurrence: GB)
  Receive Date: 20251204
  Receipt Date: 20251204
  Transmission Date: 20260118
  Serious: Yes (Other)
  Sender: GE HEALTHCARE
  Company Number: None

PATIENT
  Age: 45 Year
  Sex: Female
  Weight: 97 kg

DRUGS (2)
  1. OMNIPAQUE [Suspect]
     Active Substance: IOHEXOL
     Indication: Computerised tomogram
     Dosage: 302 MG, TOTAL
     Route: 042
     Dates: start: 20251118
  2. OMNIPAQUE [Suspect]
     Active Substance: IOHEXOL
     Dosage: 140 MG, TOTAL
     Route: 042
     Dates: start: 20251118

REACTIONS (1)
  - Panic attack [Recovered/Resolved]
